FAERS Safety Report 22341128 (Version 2)
Quarter: 2023Q2

REPORT INFORMATION
  Report Type: Spontaneous
  Country: ES (occurrence: ES)
  Receive Date: 20230518
  Receipt Date: 20230604
  Transmission Date: 20230722
  Serious: No
  Sender: FDA-Public Use
  Company Number: ES-ALXN-A202306296

PATIENT
  Age: 9 Year
  Sex: Female
  Weight: 23 kg

DRUGS (3)
  1. ULTOMIRIS [Suspect]
     Active Substance: RAVULIZUMAB-CWVZ
     Dosage: 2100 MG 2 WEEKS LATER, AND EVERY 8 WEEKS THEREAFTER
     Route: 042
     Dates: start: 20220719
  2. ULTOMIRIS [Suspect]
     Active Substance: RAVULIZUMAB-CWVZ
     Indication: Paroxysmal nocturnal haemoglobinuria
     Dosage: 900 MG, UNK
     Route: 042
     Dates: start: 20220705
  3. PENICILLIN V [Concomitant]
     Active Substance: PENICILLIN V
     Indication: Antibiotic prophylaxis
     Dosage: 500 MG, Q12H
     Route: 065

REACTIONS (1)
  - Off label use [Unknown]
